FAERS Safety Report 18089705 (Version 2)
Quarter: 2020Q3

REPORT INFORMATION
  Report Type: Spontaneous
  Country: US (occurrence: US)
  Receive Date: 20200730
  Receipt Date: 20200812
  Transmission Date: 20201103
  Serious: Yes (Death, Other)
  Sender: FDA-Public Use
  Company Number: US-ALKEM LABORATORIES LIMITED-US-ALKEM-2020-03923

PATIENT
  Age: 3 Year
  Sex: Female

DRUGS (1)
  1. DEFERASIROX. [Suspect]
     Active Substance: DEFERASIROX
     Indication: THALASSAEMIA BETA
     Dosage: UNK
     Route: 065

REACTIONS (5)
  - Brain herniation [Fatal]
  - Acute hepatic failure [Fatal]
  - Respiratory arrest [Fatal]
  - Serum ferritin decreased [Unknown]
  - Fanconi syndrome acquired [Fatal]
